FAERS Safety Report 5323928-7 (Version None)
Quarter: 2007Q2

REPORT INFORMATION
  Report Type: 
  Country: None (occurrence: None)
  Receive Date: 20070509
  Receipt Date: 20070509
  Transmission Date: 20071010
  Serious: Yes (Hospitalization)
  Sender: FDA-Public Use
  Company Number: None

PATIENT
  Age: 62 Year
  Sex: Male

DRUGS (4)
  1. METHADONE HCL [Suspect]
     Indication: MUSCLE SPASMS
     Dosage: BID PO
     Route: 048
     Dates: start: 20070305, end: 20070312
  2. OXYCODONE AND ACETAMINOPHEN [Suspect]
     Indication: FALL
     Dosage: 1 TAB PO Q6H
     Route: 048
     Dates: start: 20030520, end: 20070508
  3. OXYCODONE AND ACETAMINOPHEN [Suspect]
     Indication: MUSCULOSKELETAL PAIN
     Dosage: 1 TAB PO Q6H
     Route: 048
     Dates: start: 20030520, end: 20070508
  4. OXYCODONE AND ACETAMINOPHEN [Suspect]
     Indication: PAIN IN EXTREMITY
     Dosage: 1 TAB PO Q6H
     Route: 048
     Dates: start: 20030520, end: 20070508

REACTIONS (6)
  - FAECAL INCONTINENCE [None]
  - LETHARGY [None]
  - MENTAL STATUS CHANGES [None]
  - MUSCLE SPASMS [None]
  - NECK PAIN [None]
  - URINARY INCONTINENCE [None]
